FAERS Safety Report 8478426 (Version 2)
Quarter: 2012Q4

REPORT INFORMATION
  Report Type: 
  Country: US (occurrence: US)
  Receive Date: 20120327
  Receipt Date: 20121206
  Transmission Date: 20130627
  Serious: Yes (Hospitalization)
  Sender: FDA-Public Use
  Company Number: US-GLAXOSMITHKLINE-A0910409A

PATIENT
  Age: 50 Year
  Sex: Male

DRUGS (2)
  1. AVANDIA [Suspect]
     Indication: DIABETES MELLITUS
     Dosage: 4MG Twice per day
     Route: 048
     Dates: end: 201005
  2. AVANDAMET [Suspect]
     Indication: DIABETES MELLITUS
     Route: 065

REACTIONS (4)
  - Cerebrovascular accident [Not Recovered/Not Resolved]
  - Cardiac failure congestive [Unknown]
  - Fatigue [Unknown]
  - Swelling [Unknown]
